FAERS Safety Report 13633965 (Version 1)
Quarter: 2017Q2

REPORT INFORMATION
  Report Type: Spontaneous
  Country: AU (occurrence: AU)
  Receive Date: 20170609
  Receipt Date: 20170609
  Transmission Date: 20170830
  Serious: Yes (Hospitalization, Other)
  Sender: FDA-Public Use
  Company Number: AU-TORRENT-00000199

PATIENT
  Age: 73 Year
  Sex: Female

DRUGS (6)
  1. METFORMIN [Concomitant]
     Active Substance: METFORMIN HYDROCHLORIDE
  2. CANDESARTAN. [Concomitant]
     Active Substance: CANDESARTAN
  3. PANTOPRAZOLE [Suspect]
     Active Substance: PANTOPRAZOLE
  4. PROCHLORPERAZINE. [Concomitant]
     Active Substance: PROCHLORPERAZINE
  5. AMLODIPINE [Concomitant]
     Active Substance: AMLODIPINE BESYLATE
  6. ATORVASTATIN [Concomitant]
     Active Substance: ATORVASTATIN

REACTIONS (4)
  - Generalised tonic-clonic seizure [Recovered/Resolved]
  - Cerebellar syndrome [Recovered/Resolved]
  - Atrial fibrillation [Recovered/Resolved]
  - Hypomagnesaemia [Recovered/Resolved]
